FAERS Safety Report 10712766 (Version 1)
Quarter: 2015Q1

REPORT INFORMATION
  Report Type: Spontaneous
  Country: US (occurrence: None)
  Receive Date: 20150114
  Receipt Date: 20150114
  Transmission Date: 20150721
  Serious: Yes (Hospitalization)
  Sender: FDA-Public Use
  Company Number: None

PATIENT
  Age: 36 Year
  Sex: Female
  Weight: 76.6 kg

DRUGS (2)
  1. METHYLENE BLUE. [Suspect]
     Active Substance: METHYLENE BLUE
     Indication: DEPRESSION
     Route: 050
     Dates: start: 20150108, end: 20150108
  2. METHYLENE BLUE. [Suspect]
     Active Substance: METHYLENE BLUE
     Indication: SURGERY
     Route: 050
     Dates: start: 20150108, end: 20150108

REACTIONS (1)
  - Serotonin syndrome [None]

NARRATIVE: CASE EVENT DATE: 20150112
